FAERS Safety Report 14081660 (Version 1)
Quarter: 2017Q4

REPORT INFORMATION
  Report Type: Spontaneous
  Country: US (occurrence: US)
  Receive Date: 20171012
  Receipt Date: 20171012
  Transmission Date: 20180321
  Serious: Yes (Hospitalization, Other)
  Sender: FDA-Public Use
  Company Number: US-DSJP-DSU-2016-132446

PATIENT

DRUGS (5)
  1. OXYCODONE [Concomitant]
     Active Substance: OXYCODONE
     Indication: PAIN
     Dosage: 5 MG, AS NEEDED
  2. BENICAR [Suspect]
     Active Substance: OLMESARTAN MEDOXOMIL
     Indication: HYPERTENSION
     Dosage: 20 MG, UNK
     Dates: start: 20080201, end: 20150805
  3. BENICAR HCT [Suspect]
     Active Substance: HYDROCHLOROTHIAZIDE\OLMESARTAN MEDOXOMIL
     Dosage: 40/25 MG
     Dates: start: 20080201, end: 20150805
  4. BENICAR HCT [Suspect]
     Active Substance: HYDROCHLOROTHIAZIDE\OLMESARTAN MEDOXOMIL
     Indication: HYPERTENSION
     Dosage: 10/12.5 MG
     Dates: start: 20080201, end: 20150805
  5. BENICAR [Suspect]
     Active Substance: OLMESARTAN MEDOXOMIL
     Dosage: 40 MG, UNK
     Dates: start: 20080201, end: 20150805

REACTIONS (6)
  - Hiatus hernia [Unknown]
  - Malabsorption [Not Recovered/Not Resolved]
  - Haemorrhoids [Unknown]
  - Irritable bowel syndrome [Unknown]
  - Diverticulitis [Unknown]
  - Gastrointestinal tract adenoma [Recovered/Resolved]

NARRATIVE: CASE EVENT DATE: 200803
